FAERS Safety Report 23919771 (Version 1)
Quarter: 2024Q2

REPORT INFORMATION
  Report Type: Spontaneous
  Country: GB (occurrence: GB)
  Receive Date: 20240530
  Receipt Date: 20240530
  Transmission Date: 20240716
  Serious: Yes (Other)
  Sender: FDA-Public Use
  Company Number: None

PATIENT
  Age: 89 Year
  Sex: Female
  Weight: 70 kg

DRUGS (10)
  1. DOXYCYCLINE [Suspect]
     Active Substance: DOXYCYCLINE\DOXYCYCLINE HYCLATE
     Indication: Ill-defined disorder
     Dosage: UNK
     Route: 065
     Dates: start: 20240523
  2. Adcal [Concomitant]
     Indication: Ill-defined disorder
     Dosage: 2 DOSAGE FORM, BID (TAKE TWO TWICE DAILY)
     Route: 065
     Dates: start: 20240212
  3. ALENDRONIC ACID [Concomitant]
     Active Substance: ALENDRONIC ACID
     Indication: Ill-defined disorder
     Dosage: 1 DOSAGE FORM, QW (TAKE ONE WEEKLY)
     Route: 065
     Dates: start: 20240212
  4. AMOXICILLIN\CLAVULANATE POTASSIUM [Concomitant]
     Active Substance: AMOXICILLIN\CLAVULANATE POTASSIUM
     Indication: Ill-defined disorder
     Dosage: 1 DOSAGE FORM, TID (TAKE ONE 3 TIMES/DAY)
     Route: 065
     Dates: start: 20240410, end: 20240417
  5. POLYETHYLENE GLYCOL 3350\POTASSIUM CHLORIDE\SODIUM BICARBONATE\SODIUM [Concomitant]
     Active Substance: POLYETHYLENE GLYCOL 3350\POTASSIUM CHLORIDE\SODIUM BICARBONATE\SODIUM CHLORIDE
     Indication: Ill-defined disorder
     Dosage: 1 DOSAGE FORM, BID (1 BD)
     Route: 065
     Dates: start: 20240125
  6. DOXYCYCLINE [Concomitant]
     Active Substance: DOXYCYCLINE\DOXYCYCLINE HYCLATE
     Indication: Ill-defined disorder
     Dosage: UNK, QD (TWO NOW THEN ONE DAILY)
     Route: 065
     Dates: start: 20240408, end: 20240415
  7. FLUCLOXACILLIN [Concomitant]
     Active Substance: FLUCLOXACILLIN
     Indication: Ill-defined disorder
     Dosage: 2 DOSAGE FORM, QD (2QDS)
     Route: 065
     Dates: start: 20240325, end: 20240401
  8. FUROSEMIDE [Concomitant]
     Active Substance: FUROSEMIDE
     Indication: Ill-defined disorder
     Dosage: 2 DOSAGE FORM, QD (2 DAILY)
     Route: 065
     Dates: start: 20230612
  9. NITROFURANTOIN [Concomitant]
     Active Substance: NITROFURANTOIN
     Indication: Ill-defined disorder
     Dosage: UNK, BID (TO BE TAKEN TWICE DAILY)
     Route: 065
     Dates: start: 20240320, end: 20240327
  10. Zerobase [Concomitant]
     Indication: Ill-defined disorder
     Dosage: UNK, BID (APPLY GENEROUSLY TWICE DAILY)
     Route: 065
     Dates: start: 20230612

REACTIONS (1)
  - Loss of consciousness [Recovered/Resolved]

NARRATIVE: CASE EVENT DATE: 20240523
